FAERS Safety Report 25446933 (Version 2)
Quarter: 2025Q4

REPORT INFORMATION
  Report Type: Spontaneous
  Country: JP (occurrence: JP)
  Receive Date: 20250617
  Receipt Date: 20251113
  Transmission Date: 20260117
  Serious: Yes (Death, Other)
  Sender: MERCK SHARP & DOHME LLC
  Company Number: JP-MSD-2411JPN001487J

PATIENT

DRUGS (3)
  1. KEYTRUDA [Suspect]
     Active Substance: PEMBROLIZUMAB
     Indication: Oesophageal carcinoma
     Dosage: DOSE DESCRIPTION : 200 MILLIGRAM/SQ. METER, Q3W?DAILY DOSE : 9.4 MILLIGRAM/SQ. METER?REGIMEN DOSE...
     Route: 042
  2. CISPLATIN [Suspect]
     Active Substance: CISPLATIN
     Indication: Oesophageal carcinoma
     Dosage: DOSE DESCRIPTION : 80 MILLIGRAM/SQ. METER
     Route: 042
  3. FLUOROURACIL [Suspect]
     Active Substance: FLUOROURACIL
     Indication: Oesophageal carcinoma
     Dosage: DOSE DESCRIPTION : 800 MILLIGRAM/SQ. METER
     Route: 042

REACTIONS (5)
  - Toxicity to various agents [Fatal]
  - Immune-mediated adverse reaction [Unknown]
  - Febrile neutropenia [Unknown]
  - Liver disorder [Unknown]
  - Product use issue [Unknown]
